FAERS Safety Report 9023726 (Version 3)
Quarter: 2013Q3

REPORT INFORMATION
  Report Type: Spontaneous
  Country: JP (occurrence: JP)
  Receive Date: 20130121
  Receipt Date: 20130729
  Transmission Date: 20140515
  Serious: Yes (Hospitalization, Other)
  Sender: FDA-Public Use
  Company Number: JP-SANOFI-AVENTIS-2013SA003757

PATIENT
  Age: 66 Year
  Sex: Male
  Weight: 61 kg

DRUGS (34)
  1. CALCIUM LEVOFOLINATE [Suspect]
     Indication: RECTAL CANCER
     Dosage: INTRAVENOUS INFUSION
     Route: 041
     Dates: start: 20110707, end: 20110707
  2. CALCIUM LEVOFOLINATE [Suspect]
     Indication: RECTAL CANCER
     Dosage: INTRAVENOUS INFUSION
     Route: 041
     Dates: start: 20110418, end: 20110418
  3. CALCIUM LEVOFOLINATE [Suspect]
     Indication: RECTAL CANCER
     Dosage: INTRAVENOUS INFUSION
     Route: 041
     Dates: start: 20110922, end: 20110922
  4. CALCIUM LEVOFOLINATE [Suspect]
     Indication: RECTAL CANCER
     Dosage: INTRAVENOUS INFUSION
     Route: 041
     Dates: start: 20110512, end: 20110512
  5. CALCIUM LEVOFOLINATE [Suspect]
     Indication: RECTAL CANCER
     Dosage: INTRAVENOUS INFUSION
     Route: 041
     Dates: start: 20110526, end: 20110526
  6. CALCIUM LEVOFOLINATE [Suspect]
     Indication: RECTAL CANCER
     Dosage: INTRAVENOUS INFUSION
     Route: 041
     Dates: start: 20110616, end: 20110616
  7. ELPLAT [Suspect]
     Indication: RECTAL CANCER
     Dosage: INTRAVENOUS INFUSION
     Route: 041
     Dates: start: 20110418, end: 20110418
  8. ELPLAT [Suspect]
     Indication: RECTAL CANCER
     Dosage: INTRAVENOUS INFUSION
     Route: 041
     Dates: start: 20110512, end: 20110512
  9. ELPLAT [Suspect]
     Indication: RECTAL CANCER
     Dosage: INTRAVENOUS INFUSION
     Route: 041
     Dates: start: 20110707, end: 20110707
  10. ELPLAT [Suspect]
     Indication: RECTAL CANCER
     Dosage: INTRAVENOUS INFUSION
     Route: 041
     Dates: start: 20110526, end: 20110526
  11. ELPLAT [Suspect]
     Indication: RECTAL CANCER
     Dosage: INTRAVENOUS INFUSION
     Route: 041
     Dates: start: 20110922, end: 20110922
  12. ELPLAT [Suspect]
     Indication: RECTAL CANCER
     Dosage: INTRAVENOUS INFUSION
     Route: 041
     Dates: start: 20110616, end: 20110616
  13. FLUOROURACIL [Suspect]
     Indication: RECTAL CANCER
     Dosage: INJECTION
     Route: 040
     Dates: start: 20110418, end: 20110418
  14. FLUOROURACIL [Suspect]
     Indication: RECTAL CANCER
     Dosage: INJECTION
     Route: 040
     Dates: start: 20110418, end: 20110418
  15. FLUOROURACIL [Suspect]
     Indication: RECTAL CANCER
     Dosage: INJECTION
     Route: 040
     Dates: start: 20110512, end: 20110512
  16. FLUOROURACIL [Suspect]
     Indication: RECTAL CANCER
     Dosage: INJECTION
     Route: 040
     Dates: start: 20110512, end: 20110512
  17. FLUOROURACIL [Suspect]
     Indication: RECTAL CANCER
     Dosage: INJECTION
     Route: 040
     Dates: start: 20110526, end: 20110526
  18. FLUOROURACIL [Suspect]
     Indication: RECTAL CANCER
     Dosage: INJECTION
     Route: 040
     Dates: start: 20110526, end: 20110526
  19. FLUOROURACIL [Suspect]
     Indication: RECTAL CANCER
     Dosage: INJECTION
     Route: 040
     Dates: start: 20110616, end: 20110616
  20. FLUOROURACIL [Suspect]
     Indication: RECTAL CANCER
     Dosage: INJECTION
     Route: 040
     Dates: start: 20110616, end: 20110616
  21. FLUOROURACIL [Suspect]
     Indication: RECTAL CANCER
     Dosage: INJECTION
     Route: 040
     Dates: start: 20110707, end: 20110707
  22. FLUOROURACIL [Suspect]
     Indication: RECTAL CANCER
     Dosage: INJECTION
     Route: 040
     Dates: start: 20110707, end: 20110707
  23. FLUOROURACIL [Suspect]
     Indication: RECTAL CANCER
     Dosage: INJECTION
     Route: 040
     Dates: start: 20110922, end: 20110922
  24. FLUOROURACIL [Suspect]
     Indication: RECTAL CANCER
     Dosage: INJECTION
     Route: 040
     Dates: start: 20110922, end: 20110922
  25. AVASTIN [Suspect]
     Indication: RECTAL CANCER
     Route: 041
     Dates: start: 20110707, end: 20110707
  26. AVASTIN [Suspect]
     Indication: RECTAL CANCER
     Route: 041
     Dates: start: 20110418, end: 20110418
  27. AVASTIN [Suspect]
     Indication: RECTAL CANCER
     Route: 041
     Dates: start: 20110512, end: 20110512
  28. AVASTIN [Suspect]
     Indication: RECTAL CANCER
     Route: 041
     Dates: start: 20110526, end: 20110526
  29. AVASTIN [Suspect]
     Indication: RECTAL CANCER
     Route: 041
     Dates: start: 20110616, end: 20110616
  30. KYTRIL [Concomitant]
     Dates: start: 20110418, end: 20110922
  31. DECADRON [Concomitant]
     Dates: start: 20110418, end: 20110922
  32. EMEND [Concomitant]
     Dates: start: 20110418, end: 20110922
  33. OMEPRAL [Concomitant]
     Dates: start: 20110716, end: 20110723
  34. GRAN [Concomitant]
     Dates: start: 20110721, end: 20110723

REACTIONS (4)
  - Duodenal ulcer [Recovering/Resolving]
  - Gastrooesophageal reflux disease [Recovering/Resolving]
  - Neutrophil count decreased [Recovering/Resolving]
  - White blood cell count decreased [Recovering/Resolving]
